FAERS Safety Report 16866599 (Version 1)
Quarter: 2019Q3

REPORT INFORMATION
  Report Type: Spontaneous
  Country: GB (occurrence: GB)
  Receive Date: 20190930
  Receipt Date: 20190930
  Transmission Date: 20191005
  Serious: Yes (Other)
  Sender: FDA-Public Use
  Company Number: GB-ACCORD-156146

PATIENT
  Age: 82 Year
  Sex: Female
  Weight: 76.2 kg

DRUGS (7)
  1. SPIRONOLACTONE. [Suspect]
     Active Substance: SPIRONOLACTONE
     Indication: FLUID RETENTION
     Route: 048
     Dates: start: 2019, end: 2019
  2. QUINIDINE [Concomitant]
     Active Substance: QUINIDINE
  3. LEVOTHYROXINE. [Concomitant]
     Active Substance: LEVOTHYROXINE
  4. RAMIPRIL. [Concomitant]
     Active Substance: RAMIPRIL
  5. DABIGATRAN [Concomitant]
     Active Substance: DABIGATRAN
  6. SIMVASTATIN. [Concomitant]
     Active Substance: SIMVASTATIN
  7. FUROSEMIDE. [Concomitant]
     Active Substance: FUROSEMIDE

REACTIONS (1)
  - Abdominal pain upper [Recovered/Resolved with Sequelae]

NARRATIVE: CASE EVENT DATE: 2019
